FAERS Safety Report 4549876-8 (Version None)
Quarter: 2004Q4

REPORT INFORMATION
  Report Type: 
  Country: None (occurrence: None)
  Receive Date: 20041227
  Receipt Date: 20041005
  Transmission Date: 20050328
  Serious: No
  Sender: FDA-Public Use
  Company Number: 04P-163-0276206-00

PATIENT
  Age: 53 Year
  Sex: Female

DRUGS (4)
  1. HUMIRA [Suspect]
     Indication: RHEUMATOID ARTHRITIS
     Dates: start: 20040801
  2. METHOTREXATE [Concomitant]
  3. NAPROXEN [Concomitant]
  4. CRESTOR [Concomitant]

REACTIONS (1)
  - INJECTION SITE ERYTHEMA [None]
